FAERS Safety Report 8380339-8 (Version None)
Quarter: 2012Q2

REPORT INFORMATION
  Report Type: 
  Country: None (occurrence: None)
  Receive Date: 20120427
  Receipt Date: 20120416
  Transmission Date: 20120825
  Serious: Yes (Hospitalization, Other)
  Sender: FDA-Public Use
  Company Number: 2012032031

PATIENT

DRUGS (1)
  1. PRIVIGEN [Suspect]
     Indication: BLOOD IMMUNOGLOBULIN G DECREASED

REACTIONS (1)
  - HIV TEST POSITIVE [None]
